FAERS Safety Report 24698964 (Version 1)
Quarter: 2024Q4

REPORT INFORMATION
  Report Type: Spontaneous
  Country: CN (occurrence: CN)
  Receive Date: 20241205
  Receipt Date: 20241205
  Transmission Date: 20250115
  Serious: Yes (Other)
  Sender: ABBVIE
  Company Number: MO-ABBVIE-6027108

PATIENT
  Age: 23 Year
  Sex: Female

DRUGS (2)
  1. LEUPROLIDE [Suspect]
     Active Substance: LEUPROLIDE
     Indication: Metastases to central nervous system
     Route: 030
  2. LEUPROLIDE [Suspect]
     Active Substance: LEUPROLIDE
     Indication: Breast cancer

REACTIONS (2)
  - Metastases to central nervous system [Not Recovered/Not Resolved]
  - Therapeutic product effect incomplete [Unknown]
